FAERS Safety Report 10778442 (Version 2)
Quarter: 2015Q1

REPORT INFORMATION
  Report Type: Spontaneous
  Country: PL (occurrence: PL)
  Receive Date: 20150209
  Receipt Date: 20150213
  Transmission Date: 20150721
  Serious: Yes (Other)
  Sender: FDA-Public Use
  Company Number: PL-B.I. PHARMACEUTICALS,INC./RIDGEFIELD-2015-BI-06001PN

PATIENT
  Age: 90 Year
  Sex: Female
  Weight: 68 kg

DRUGS (7)
  1. KALIPOZ [Concomitant]
     Active Substance: POTASSIUM CHLORIDE
     Indication: CARDIAC FAILURE
     Route: 048
     Dates: start: 20150202
  2. NEBILET [Concomitant]
     Active Substance: NEBIVOLOL
     Indication: ESSENTIAL HYPERTENSION
     Dosage: 2.5 MG
     Route: 048
     Dates: start: 20140623
  3. PRADAXA [Suspect]
     Active Substance: DABIGATRAN ETEXILATE MESYLATE
     Indication: ATRIAL FIBRILLATION
     Dosage: 220 MG
     Route: 048
     Dates: start: 20150123, end: 20150204
  4. FUROSEMIDE. [Concomitant]
     Active Substance: FUROSEMIDE
     Indication: CARDIAC FAILURE
     Dosage: 40 MG
     Route: 048
     Dates: start: 20131211
  5. PRADAXA [Suspect]
     Active Substance: DABIGATRAN ETEXILATE MESYLATE
     Indication: DEEP VEIN THROMBOSIS
  6. AMPRIL [Concomitant]
     Indication: ESSENTIAL HYPERTENSION
     Dosage: 2.5 MG
     Route: 048
     Dates: start: 20131211
  7. POLOCARD [Concomitant]
     Active Substance: ASPIRIN
     Indication: CARDIAC FAILURE
     Dosage: 75 MG
     Route: 048
     Dates: start: 20131211

REACTIONS (1)
  - Lymphorrhoea [Not Recovered/Not Resolved]

NARRATIVE: CASE EVENT DATE: 20150202
